FAERS Safety Report 12508245 (Version 1)
Quarter: 2016Q2

REPORT INFORMATION
  Report Type: Spontaneous
  Country: US (occurrence: US)
  Receive Date: 20160629
  Receipt Date: 20160629
  Transmission Date: 20160815
  Serious: No
  Sender: FDA-Public Use
  Company Number: US-GLAXOSMITHKLINE-US2016087286

PATIENT
  Age: 54 Year
  Sex: Female

DRUGS (5)
  1. VENTOLIN HFA [Suspect]
     Active Substance: ALBUTEROL SULFATE
     Indication: BRONCHITIS
  2. VENTOLIN HFA [Suspect]
     Active Substance: ALBUTEROL SULFATE
     Indication: CHRONIC OBSTRUCTIVE PULMONARY DISEASE
  3. ASPIRIN. [Concomitant]
     Active Substance: ASPIRIN
  4. PROVENTIL [Concomitant]
     Active Substance: ALBUTEROL
  5. VENTOLIN HFA [Suspect]
     Active Substance: ALBUTEROL SULFATE
     Indication: ASTHMA
     Dosage: 1 PUFF(S), PRN
     Dates: start: 1996

REACTIONS (2)
  - Device use error [Unknown]
  - Asthma [Recovered/Resolved]

NARRATIVE: CASE EVENT DATE: 20160602
